FAERS Safety Report 5113472-4 (Version None)
Quarter: 2006Q3

REPORT INFORMATION
  Report Type: 
  Country: None (occurrence: None)
  Receive Date: 20060920
  Receipt Date: 20051025
  Transmission Date: 20061208
  Serious: Yes (Other)
  Sender: FDA-Public Use
  Company Number: STI-2006-00110

PATIENT
  Age: 22 Year
  Sex: Female

DRUGS (1)
  1. 516B CLINDOXYL GEL (BENZOYL PEROXIDE W/CLINDAMYCIN) (1 DOSAGE FORM, GE [Suspect]
     Indication: ACNE
     Dosage: (AT NIGHT) TOPICAL
     Route: 061
     Dates: start: 20051019, end: 20051024

REACTIONS (5)
  - DYSPNOEA [None]
  - HYPERSENSITIVITY [None]
  - LOCAL SWELLING [None]
  - NASAL OEDEMA [None]
  - PHARYNGEAL OEDEMA [None]
